FAERS Safety Report 5009310-0 (Version None)
Quarter: 2006Q2

REPORT INFORMATION
  Report Type: 
  Country: None (occurrence: None)
  Receive Date: 20060524
  Receipt Date: 20060512
  Transmission Date: 20061013
  Serious: Yes (Hospitalization)
  Sender: FDA-Public Use
  Company Number: US-JNJFOC-20060305764

PATIENT
  Sex: Male
  Weight: 74.84 kg

DRUGS (22)
  1. REMICADE [Suspect]
     Route: 042
  2. REMICADE [Suspect]
     Route: 042
  3. REMICADE [Suspect]
     Indication: RHEUMATOID ARTHRITIS
     Route: 042
  4. LIDODERM [Concomitant]
     Route: 062
  5. OXYCONTIN [Concomitant]
  6. PREDNISONE TAB [Concomitant]
  7. FOSAMAX [Concomitant]
  8. ALEVE (CAPLET) [Concomitant]
  9. MULTIVITAMIN [Concomitant]
  10. MULTIVITAMIN [Concomitant]
  11. MULTIVITAMIN [Concomitant]
  12. MULTIVITAMIN [Concomitant]
  13. MULTIVITAMIN [Concomitant]
  14. MULTIVITAMIN [Concomitant]
  15. MULTIVITAMIN [Concomitant]
  16. MULTIVITAMIN [Concomitant]
  17. CALCIUM GLUCONATE [Concomitant]
  18. FISH OIL [Concomitant]
  19. GLUCOSAMINE AND CHONDROITIN [Concomitant]
  20. GLUCOSAMINE AND CHONDROITIN [Concomitant]
  21. GLUCOSAMINE AND CHONDROITIN [Concomitant]
  22. GLUCOSAMINE AND CHONDROITIN [Concomitant]

REACTIONS (9)
  - CHEST PAIN [None]
  - EYE IRRITATION [None]
  - HEART RATE INCREASED [None]
  - INFUSION RELATED REACTION [None]
  - MUSCLE SPASMS [None]
  - PAIN [None]
  - PALPITATIONS [None]
  - TONGUE DISORDER [None]
  - URINARY TRACT DISORDER [None]
